FAERS Safety Report 7284754-5 (Version None)
Quarter: 2011Q1

REPORT INFORMATION
  Report Type: 
  Country: None (occurrence: None)
  Receive Date: 20110210
  Receipt Date: 20100204
  Transmission Date: 20110831
  Serious: No
  Sender: FDA-Public Use
  Company Number: 2010BI004246

PATIENT
  Sex: Female

DRUGS (1)
  1. TYSABRI [Suspect]
     Indication: MULTIPLE SCLEROSIS
     Route: 042
     Dates: start: 20071016

REACTIONS (7)
  - FATIGUE [None]
  - PHOTOPHOBIA [None]
  - MULTIPLE SCLEROSIS [None]
  - INFLUENZA LIKE ILLNESS [None]
  - HEADACHE [None]
  - PAIN [None]
  - MULTIPLE SCLEROSIS RELAPSE [None]
